FAERS Safety Report 5833899-2 (Version None)
Quarter: 2008Q3

REPORT INFORMATION
  Report Type: 
  Country: None (occurrence: None)
  Receive Date: 20080805
  Receipt Date: 20080731
  Transmission Date: 20090109
  Serious: Yes (Hospitalization)
  Sender: FDA-Public Use
  Company Number: A0741001A

PATIENT
  Age: 21 Month
  Sex: Male
  Weight: 12 kg

DRUGS (2)
  1. AMOXIL [Suspect]
     Dosage: 4.5ML TWICE PER DAY
     Route: 048
     Dates: start: 20080724, end: 20080727
  2. HEDERA HELIX [Concomitant]
     Dates: start: 20080724, end: 20080726

REACTIONS (4)
  - DIARRHOEA [None]
  - DRUG INEFFECTIVE [None]
  - DYSPNOEA [None]
  - OVERDOSE [None]
